FAERS Safety Report 16174104 (Version 4)
Quarter: 2022Q4

REPORT INFORMATION
  Report Type: Spontaneous
  Country: US (occurrence: None)
  Receive Date: 20190409
  Receipt Date: 20221122
  Transmission Date: 20230113
  Serious: Yes (Other)
  Sender: FDA-Public Use
  Company Number: 2019SE11962

PATIENT
  Age: 50 Year
  Sex: Male
  Weight: 97.5 kg

DRUGS (72)
  1. NEXIUM [Suspect]
     Active Substance: ESOMEPRAZOLE MAGNESIUM
     Indication: Gastrooesophageal reflux disease
     Route: 048
     Dates: start: 2003, end: 2012
  2. NEXIUM [Suspect]
     Active Substance: ESOMEPRAZOLE MAGNESIUM
     Indication: Gastrooesophageal reflux disease
     Route: 048
     Dates: start: 2003, end: 2016
  3. NEXIUM [Suspect]
     Active Substance: ESOMEPRAZOLE MAGNESIUM
     Indication: Gastrooesophageal reflux disease
     Route: 048
     Dates: start: 20091027
  4. NEXIUM [Suspect]
     Active Substance: ESOMEPRAZOLE MAGNESIUM
     Indication: Gastrooesophageal reflux disease
     Route: 048
  5. NEXIUM [Suspect]
     Active Substance: ESOMEPRAZOLE MAGNESIUM
     Indication: Gastrooesophageal reflux disease
     Route: 048
     Dates: start: 2003
  6. OMEPRAZOLE [Suspect]
     Active Substance: OMEPRAZOLE
     Indication: Gastrooesophageal reflux disease
     Dosage: GENERIC
     Route: 065
     Dates: start: 2012, end: 2016
  7. OMEPRAZOLE [Suspect]
     Active Substance: OMEPRAZOLE
     Indication: Gastrooesophageal reflux disease
     Dosage: GENERIC
     Route: 065
     Dates: start: 20120611
  8. OMEPRAZOLE [Suspect]
     Active Substance: OMEPRAZOLE
     Indication: Gastrooesophageal reflux disease
     Dosage: GENERIC
     Route: 065
     Dates: end: 2016
  9. PREVACID [Suspect]
     Active Substance: LANSOPRAZOLE
     Indication: Gastrooesophageal reflux disease
     Route: 065
     Dates: start: 2003, end: 2016
  10. PREVACID [Suspect]
     Active Substance: LANSOPRAZOLE
     Indication: Gastrooesophageal reflux disease
     Route: 065
     Dates: start: 2004
  11. PREVACID [Suspect]
     Active Substance: LANSOPRAZOLE
     Indication: Gastrooesophageal reflux disease
     Route: 048
     Dates: start: 20070925
  12. PREVACID [Suspect]
     Active Substance: LANSOPRAZOLE
     Indication: Gastrooesophageal reflux disease
     Route: 065
     Dates: start: 2007
  13. RANITIDINE [Concomitant]
     Active Substance: RANITIDINE
     Indication: Gastrooesophageal reflux disease
     Dates: start: 2016
  14. GABAPENTIN [Concomitant]
     Active Substance: GABAPENTIN
     Indication: Muscle disorder
     Dates: start: 2007
  15. CHLORTHALIDONE [Concomitant]
     Active Substance: CHLORTHALIDONE
     Indication: Fluid retention
     Dates: start: 2018
  16. BACLOFEN [Concomitant]
     Active Substance: BACLOFEN
     Indication: Muscle spasms
     Dates: start: 2007
  17. BACLOFEN [Concomitant]
     Active Substance: BACLOFEN
     Indication: Muscle disorder
     Dates: start: 2007
  18. PIOGLITAZONE [Concomitant]
     Active Substance: PIOGLITAZONE
     Indication: Diabetes mellitus
     Dates: start: 2018
  19. PREDNISONE [Concomitant]
     Active Substance: PREDNISONE
     Indication: Muscle disorder
     Dates: start: 2007
  20. MONTELUKAST [Concomitant]
     Active Substance: MONTELUKAST SODIUM
     Indication: Multiple allergies
     Dates: start: 2014
  21. CALCITRIOL [Concomitant]
     Active Substance: CALCITRIOL
     Indication: Parathyroid disorder
     Dates: start: 2013
  22. ROSUVASTATIN [Concomitant]
     Active Substance: ROSUVASTATIN
     Indication: Blood cholesterol abnormal
     Dates: start: 2017
  23. ATORVASTATIN [Concomitant]
     Active Substance: ATORVASTATIN
  24. ZOLPIDEM [Concomitant]
     Active Substance: ZOLPIDEM TARTRATE
  25. POTASSIUM CHLORIDE [Concomitant]
     Active Substance: POTASSIUM CHLORIDE
     Indication: Blood potassium decreased
     Dates: start: 2017
  26. VITAMIN D3 [Concomitant]
     Active Substance: CHOLECALCIFEROL
     Indication: Renal disorder
     Dates: start: 2010
  27. IRON [Concomitant]
     Active Substance: IRON
     Indication: Renal disorder
     Dates: start: 2017
  28. KRILL OIL [Concomitant]
     Active Substance: DIETARY SUPPLEMENT\KRILL OIL
     Indication: Blood cholesterol abnormal
     Dates: start: 2015
  29. EXCEDRIN [Concomitant]
     Active Substance: ACETAMINOPHEN\ASPIRIN\CAFFEINE
     Indication: Headache
     Dates: start: 2013
  30. NIACIN [Concomitant]
     Active Substance: NIACIN
     Indication: Blood triglycerides abnormal
     Dates: start: 2017
  31. VITAMINS [Concomitant]
     Active Substance: VITAMINS
     Indication: Routine health maintenance
     Dates: start: 2005
  32. CLONAZEPAM [Concomitant]
     Active Substance: CLONAZEPAM
     Dates: start: 20090811
  33. PROPOXYPHENE NAPSYLATE [Concomitant]
     Active Substance: PROPOXYPHENE NAPSYLATE
     Dates: start: 20090811
  34. VYTORIN [Concomitant]
     Active Substance: EZETIMIBE\SIMVASTATIN
     Dates: start: 20090811
  35. SKELAXIN [Concomitant]
     Active Substance: METAXALONE
     Dates: start: 20091115
  36. HYDROXYCHLOROQUINE SULFATE [Concomitant]
     Active Substance: HYDROXYCHLOROQUINE SULFATE
     Dates: start: 20091120
  37. METFORMIN HYDROCHLORIDE [Concomitant]
     Active Substance: METFORMIN HYDROCHLORIDE
     Dates: start: 20091228
  38. EFFEXOR [Concomitant]
     Active Substance: VENLAFAXINE HYDROCHLORIDE
     Dates: start: 20101005
  39. FENOFIBRATE [Concomitant]
     Active Substance: FENOFIBRATE
     Dates: start: 20101005
  40. GLYBURIDE [Concomitant]
     Active Substance: GLYBURIDE
     Route: 048
     Dates: start: 20160203
  41. STARLIX [Concomitant]
     Active Substance: NATEGLINIDE
     Route: 048
  42. JANUVIA [Concomitant]
     Active Substance: SITAGLIPTIN PHOSPHATE
     Route: 048
  43. DANTROLENE SODIUM [Concomitant]
     Active Substance: DANTROLENE SODIUM
     Route: 048
     Dates: start: 20080914
  44. VIAGRA [Concomitant]
     Active Substance: SILDENAFIL CITRATE
     Route: 048
     Dates: start: 20080912
  45. TRIMETHOBENZAMIDE [Concomitant]
     Active Substance: TRIMETHOBENZAMIDE
     Route: 048
     Dates: start: 20080705
  46. MIRAPEX [Concomitant]
     Active Substance: PRAMIPEXOLE DIHYDROCHLORIDE
     Route: 065
     Dates: start: 20091228
  47. DIAZEPAM [Concomitant]
     Active Substance: DIAZEPAM
     Route: 065
  48. TRAMADOL [Concomitant]
     Active Substance: TRAMADOL
     Route: 065
  49. PRAVASTATIN [Concomitant]
     Active Substance: PRAVASTATIN
     Route: 065
  50. ROPINIROLE [Concomitant]
     Active Substance: ROPINIROLE
     Route: 065
  51. WELLBUTYRIN [Concomitant]
     Route: 065
  52. LIPITOR [Concomitant]
     Active Substance: ATORVASTATIN CALCIUM
     Route: 065
  53. AMANTADINE [Concomitant]
     Active Substance: AMANTADINE
     Route: 065
  54. ALTACE [Concomitant]
     Active Substance: RAMIPRIL
     Route: 065
  55. PAROXETINE [Concomitant]
     Active Substance: PAROXETINE
     Route: 065
  56. TRIAMTERENE [Concomitant]
     Active Substance: TRIAMTERENE
     Route: 065
  57. ZETIA [Concomitant]
     Active Substance: EZETIMIBE
     Route: 065
  58. ZYPREXA [Concomitant]
     Active Substance: OLANZAPINE
     Route: 065
  59. FLOMAX [Concomitant]
     Active Substance: TAMSULOSIN HYDROCHLORIDE
     Route: 065
  60. ADVAIR HFA [Concomitant]
     Active Substance: FLUTICASONE PROPIONATE\SALMETEROL XINAFOATE
     Route: 065
  61. WELCHOL [Concomitant]
     Active Substance: COLESEVELAM HYDROCHLORIDE
     Route: 065
  62. BENICAR [Concomitant]
     Active Substance: OLMESARTAN MEDOXOMIL
     Route: 065
  63. PLAQUENIL [Concomitant]
     Active Substance: HYDROXYCHLOROQUINE SULFATE
     Route: 065
  64. METHOTREXATE [Concomitant]
     Active Substance: METHOTREXATE
     Route: 065
  65. AMBIEN [Concomitant]
     Active Substance: ZOLPIDEM TARTRATE
     Route: 065
  66. SODIUM CHLORIDE [Concomitant]
     Active Substance: SODIUM CHLORIDE
  67. ALBUTEROL [Concomitant]
     Active Substance: ALBUTEROL
  68. PANTOPRAZOLE [Concomitant]
     Active Substance: PANTOPRAZOLE
     Route: 065
  69. XELJANZ [Concomitant]
     Active Substance: TOFACITINIB CITRATE
     Route: 065
  70. BALSALAZIDE DISODIUM [Concomitant]
     Active Substance: BALSALAZIDE DISODIUM
     Route: 065
  71. AVANDIA [Concomitant]
     Active Substance: ROSIGLITAZONE MALEATE
     Route: 065
  72. FABB [Concomitant]
     Route: 065

REACTIONS (4)
  - Chronic kidney disease [Not Recovered/Not Resolved]
  - Hyperparathyroidism secondary [Unknown]
  - Renal failure [Unknown]
  - Tubulointerstitial nephritis [Unknown]

NARRATIVE: CASE EVENT DATE: 20080101
